FAERS Safety Report 25673853 (Version 1)
Quarter: 2025Q3

REPORT INFORMATION
  Report Type: Spontaneous
  Country: US (occurrence: US)
  Receive Date: 20250813
  Receipt Date: 20250813
  Transmission Date: 20251020
  Serious: Yes (Other)
  Sender: TOLMAR
  Company Number: US-Tolmar-TLM-2025-05386

PATIENT
  Sex: Male

DRUGS (2)
  1. ELIGARD [Suspect]
     Active Substance: LEUPROLIDE ACETATE
     Indication: Product used for unknown indication
     Dosage: IN FEBRUARY A YEAR AGO
     Route: 058
  2. DEVICE [Suspect]
     Active Substance: DEVICE
     Indication: Product used for unknown indication

REACTIONS (12)
  - Arthropathy [Unknown]
  - Condition aggravated [Unknown]
  - Musculoskeletal stiffness [Unknown]
  - Gait disturbance [Unknown]
  - Erectile dysfunction [Unknown]
  - Blood testosterone increased [Unknown]
  - Hyperhidrosis [Unknown]
  - Flatulence [Unknown]
  - Breast tenderness [Unknown]
  - Nipple disorder [Unknown]
  - Penis disorder [Unknown]
  - Prostatic specific antigen increased [Unknown]
